FAERS Safety Report 8891346 (Version 1)
Quarter: 2012Q4

REPORT INFORMATION
  Report Type: Spontaneous
  Country: US (occurrence: None)
  Receive Date: 20121102
  Receipt Date: 20121102
  Transmission Date: 20130627
  Serious: Yes (Other)
  Sender: FDA-Public Use
  Company Number: None

PATIENT
  Age: 46 Year
  Sex: Female
  Weight: 96.16 kg

DRUGS (1)
  1. MIRENA [Suspect]
     Dates: start: 20101015, end: 20120224

REACTIONS (2)
  - Device dislocation [None]
  - Uterine perforation [None]
